FAERS Safety Report 5288788-1 (Version None)
Quarter: 2007Q2

REPORT INFORMATION
  Report Type: 
  Country: None (occurrence: None)
  Receive Date: 20070405
  Receipt Date: 20070323
  Transmission Date: 20071010
  Serious: Yes (Hospitalization)
  Sender: FDA-Public Use
  Company Number: US-ELI_LILLY_AND_COMPANY-US200703003466

PATIENT
  Age: 7 Year
  Sex: Male
  Weight: 20 kg

DRUGS (6)
  1. STRATTERA [Suspect]
     Indication: ATTENTION DEFICIT/HYPERACTIVITY DISORDER
     Dosage: 2 MG/KG, DAILY (1/D)
     Dates: start: 20060101, end: 20070316
  2. ZOLOFT [Concomitant]
     Dosage: UNK, UNK
     Dates: end: 20070301
  3. ZOLOFT [Concomitant]
     Dates: start: 20070301
  4. RISPERDAL [Concomitant]
     Dosage: UNK, UNK
     Dates: end: 20070301
  5. RISPERDAL [Concomitant]
     Dates: start: 20070301
  6. MELATONIN [Concomitant]
     Indication: SLEEP DISORDER

REACTIONS (7)
  - AGGRESSION [None]
  - CONVULSION [None]
  - DRUG INTERACTION [None]
  - PRESCRIBED OVERDOSE [None]
  - PYROMANIA [None]
  - SNORING [None]
  - SOMNOLENCE [None]
